FAERS Safety Report 11078947 (Version 2)
Quarter: 2015Q2

REPORT INFORMATION
  Report Type: Spontaneous
  Country: US (occurrence: US)
  Receive Date: 20150430
  Receipt Date: 20150618
  Transmission Date: 20150821
  Serious: Yes (Hospitalization, Disabling, Other)
  Sender: FDA-Public Use
  Company Number: US-009507513-1504USA023209

PATIENT
  Sex: Female

DRUGS (6)
  1. ALENDRONATE SODIUM. [Suspect]
     Active Substance: ALENDRONATE SODIUM
     Indication: OSTEOPENIA
  2. FOSAMAX PLUS D [Suspect]
     Active Substance: ALENDRONATE SODIUM\CHOLECALCIFEROL
     Indication: OSTEOPOROSIS
     Dosage: 70 MG/2800 IU
     Route: 048
     Dates: start: 20061017, end: 20070108
  3. FOSAMAX [Suspect]
     Active Substance: ALENDRONATE SODIUM
     Indication: OSTEOPENIA
  4. FOSAMAX PLUS D [Suspect]
     Active Substance: ALENDRONATE SODIUM\CHOLECALCIFEROL
     Indication: OSTEOPENIA
  5. FOSAMAX [Suspect]
     Active Substance: ALENDRONATE SODIUM
     Indication: OSTEOPOROSIS
     Dosage: 70 MG, QW
     Route: 048
     Dates: start: 20040305, end: 20091105
  6. ALENDRONATE SODIUM. [Suspect]
     Active Substance: ALENDRONATE SODIUM
     Indication: OSTEOPOROSIS
     Dosage: 70 MG, UNK
     Route: 048
     Dates: start: 20080520, end: 20100219

REACTIONS (30)
  - Stress fracture [Not Recovered/Not Resolved]
  - Dehydration [Unknown]
  - Sialoadenitis [Recovering/Resolving]
  - Asthma [Unknown]
  - Osteoporosis [Not Recovered/Not Resolved]
  - Breast cancer female [Unknown]
  - Femur fracture [Unknown]
  - Medical device removal [Unknown]
  - Hypothyroidism [Unknown]
  - Drug dispensed to wrong patient [Unknown]
  - Malaise [Unknown]
  - Low turnover osteopathy [Not Recovered/Not Resolved]
  - Intramedullary rod insertion [Unknown]
  - Diabetes mellitus [Unknown]
  - Iron deficiency anaemia [Not Recovered/Not Resolved]
  - Osteoarthritis [Unknown]
  - Cerebrovascular accident [Unknown]
  - Hypertension [Unknown]
  - Fall [Unknown]
  - Back pain [Unknown]
  - Jaw fracture [Unknown]
  - Hypercholesterolaemia [Unknown]
  - Gastrooesophageal reflux disease [Unknown]
  - Cardiomegaly [Unknown]
  - Femur fracture [Unknown]
  - Mastectomy [Unknown]
  - Intramedullary rod insertion [Unknown]
  - Osteoarthritis [Unknown]
  - Subdural haematoma [Unknown]
  - Atrial fibrillation [Not Recovered/Not Resolved]

NARRATIVE: CASE EVENT DATE: 2006
